FAERS Safety Report 9467694 (Version 3)
Quarter: 2013Q3

REPORT INFORMATION
  Report Type: Report from Study
  Country: CA (occurrence: CA)
  Receive Date: 20130821
  Receipt Date: 20130904
  Transmission Date: 20140515
  Serious: Yes (Other)
  Sender: FDA-Public Use
  Company Number: CA-ROCHE-1216227

PATIENT
  Age: 62 Year
  Sex: Male
  Weight: 101 kg

DRUGS (14)
  1. ACTEMRA [Suspect]
     Indication: RHEUMATOID ARTHRITIS
     Route: 042
     Dates: start: 20130321
  2. ACTEMRA [Suspect]
     Route: 042
     Dates: start: 20130618
  3. FLUOXETINE [Concomitant]
  4. ELTROXIN [Concomitant]
     Dosage: DAILY
     Route: 048
  5. RAMIPRIL [Concomitant]
  6. OXAZEPAM [Concomitant]
     Route: 065
  7. SUPEUDOL [Concomitant]
     Dosage: 5-30 MG
     Route: 065
  8. METOCLOPRAMIDE [Concomitant]
  9. AMITRIPTYLINE [Concomitant]
     Route: 048
  10. AMITRIPTYLINE [Concomitant]
     Route: 065
  11. M-ESLON [Concomitant]
     Route: 065
  12. M-ESLON [Concomitant]
     Route: 065
  13. PROZAC [Concomitant]
     Dosage: DAILY
     Route: 048
  14. DILTIAZEM [Concomitant]
     Dosage: DAILY
     Route: 048

REACTIONS (9)
  - Dizziness [Recovered/Resolved]
  - Hernia [Not Recovered/Not Resolved]
  - Nasopharyngitis [Recovering/Resolving]
  - Cough [Recovering/Resolving]
  - Wheezing [Not Recovered/Not Resolved]
  - Fatigue [Recovered/Resolved]
  - Blood pressure increased [Not Recovered/Not Resolved]
  - Arthralgia [Not Recovered/Not Resolved]
  - Pain in extremity [Not Recovered/Not Resolved]
